FAERS Safety Report 19440980 (Version 1)
Quarter: 2021Q2

REPORT INFORMATION
  Report Type: Spontaneous
  Country: FR (occurrence: FR)
  Receive Date: 20210621
  Receipt Date: 20210621
  Transmission Date: 20210717
  Serious: Yes (Hospitalization)
  Sender: FDA-Public Use
  Company Number: NVSC2021FR134100

PATIENT
  Age: 15 Year

DRUGS (4)
  1. ZOPICLONE [Suspect]
     Active Substance: ZOPICLONE
     Indication: TOOTHACHE
     Dosage: 7.25 MG (2 COMPRIMES)
     Route: 048
     Dates: start: 20210524
  2. TEGRETOL [Suspect]
     Active Substance: CARBAMAZEPINE
     Indication: TOOTHACHE
     Dosage: 200 MG (2 COMPRIMES)
     Route: 048
     Dates: start: 20210524
  3. LYRICA [Suspect]
     Active Substance: PREGABALIN
     Indication: TOOTHACHE
     Dosage: 1 DF (PRISE UNIQUE)
     Route: 065
     Dates: start: 20210524
  4. CYAMEMAZINE [Suspect]
     Active Substance: CYAMEMAZINE
     Indication: TOOTHACHE
     Dosage: 2 DF (PRISE UNIQUE)
     Route: 048
     Dates: start: 20210524

REACTIONS (2)
  - Medication error [Recovered/Resolved]
  - Somnolence [Recovered/Resolved]

NARRATIVE: CASE EVENT DATE: 20210524
